FAERS Safety Report 23820170 (Version 1)
Quarter: 2024Q2

REPORT INFORMATION
  Report Type: Spontaneous
  Country: US (occurrence: None)
  Receive Date: 20240503
  Receipt Date: 20240503
  Transmission Date: 20240715
  Serious: Yes (Other)
  Sender: FDA-Public Use
  Company Number: None

PATIENT
  Age: 79 Year
  Sex: Female
  Weight: 62.8 kg

DRUGS (2)
  1. REMICADE [Suspect]
     Active Substance: INFLIXIMAB
     Indication: Crohn^s disease
     Dosage: 300 MG EVERY 8 WKS INTRAVENOUS DRIP
     Route: 041
     Dates: start: 20240503, end: 20240503
  2. Infliximab Remicade [Concomitant]
     Dates: start: 20240503, end: 20240503

REACTIONS (7)
  - Infusion related reaction [None]
  - Flushing [None]
  - Dizziness [None]
  - Nausea [None]
  - Vomiting [None]
  - Chest discomfort [None]
  - Hypotension [None]

NARRATIVE: CASE EVENT DATE: 20240503
